FAERS Safety Report 6032373-0 (Version None)
Quarter: 2008Q4

REPORT INFORMATION
  Report Type: 
  Country: None (occurrence: None)
  Receive Date: 20081222
  Receipt Date: 20080910
  Transmission Date: 20090506
  Serious: No
  Sender: FDA-Public Use
  Company Number: US-WYE-H05957208

PATIENT
  Age: 65 Year
  Sex: Male
  Weight: 93.07 kg

DRUGS (7)
  1. PRISTIQ [Suspect]
     Indication: DEPRESSION
     Dosage: 50 MG 1X PER 1 DAY, ORAL
     Route: 048
     Dates: start: 20080908, end: 20080909
  2. SMZ-TMP (SULFAMETHOXAZOLE/TRIMETHOPRIM) [Concomitant]
  3. DETROL [Concomitant]
  4. METFORMIN HCL [Concomitant]
  5. GLYBURIDE [Concomitant]
  6. NIFEDIPINE [Concomitant]
  7. ATENOLOL [Concomitant]

REACTIONS (1)
  - DRUG INEFFECTIVE [None]
